FAERS Safety Report 17354582 (Version 1)
Quarter: 2020Q1

REPORT INFORMATION
  Report Type: Spontaneous
  Country: US (occurrence: US)
  Receive Date: 20200129
  Receipt Date: 20200129
  Transmission Date: 20200409
  Serious: Yes (Hospitalization, Disabling)
  Sender: FDA-Public Use
  Company Number: None

PATIENT
  Age: 26 Year
  Sex: Female
  Weight: 63 kg

DRUGS (4)
  1. CALCIUM [Concomitant]
     Active Substance: CALCIUM
  2. ONDANSETRON ODT [Concomitant]
     Active Substance: ONDANSETRON
  3. SLIM PATCH [Suspect]
     Active Substance: HERBALS
     Indication: NUTRITIONAL SUPPLEMENTATION
     Dosage: ?          QUANTITY:10 PACKAGES;?
     Route: 062
  4. VITAMIN D3 [Concomitant]
     Active Substance: CHOLECALCIFEROL

REACTIONS (7)
  - Malaise [None]
  - Cough [None]
  - Pyrexia [None]
  - Diarrhoea [None]
  - Vomiting [None]
  - Oropharyngeal pain [None]
  - Nausea [None]

NARRATIVE: CASE EVENT DATE: 20200108
